FAERS Safety Report 24538015 (Version 1)
Quarter: 2024Q4

REPORT INFORMATION
  Report Type: Spontaneous
  Country: IE (occurrence: IE)
  Receive Date: 20241023
  Receipt Date: 20241023
  Transmission Date: 20250115
  Serious: Yes (Other)
  Sender: SANDOZ
  Company Number: IE-NOVPHSZ-PHHY2019IE220709

PATIENT
  Age: 27 Year
  Sex: Female

DRUGS (3)
  1. QUETIAPINE FUMARATE [Suspect]
     Active Substance: QUETIAPINE FUMARATE
     Indication: Anxiety
     Dosage: 25 MG, UNK (1 DOSE)
     Route: 048
  2. QUETIAPINE FUMARATE [Suspect]
     Active Substance: QUETIAPINE FUMARATE
     Indication: Depression
  3. PROZAC [Concomitant]
     Active Substance: FLUOXETINE HYDROCHLORIDE
     Indication: Depression
     Dosage: 20 MG, UNK (LONG TERM)
     Route: 048

REACTIONS (6)
  - Body temperature decreased [Recovered/Resolved]
  - Lethargy [Recovered/Resolved]
  - Muscle twitching [Recovered/Resolved]
  - Syncope [Recovered/Resolved]
  - Heart rate increased [Recovered/Resolved]
  - Heart rate decreased [Recovered/Resolved]

NARRATIVE: CASE EVENT DATE: 20190705
